FAERS Safety Report 16988373 (Version 1)
Quarter: 2019Q4

REPORT INFORMATION
  Report Type: Report from Study
  Country: CN (occurrence: CN)
  Receive Date: 20191104
  Receipt Date: 20191104
  Transmission Date: 20200122
  Serious: Yes (Other)
  Sender: FDA-Public Use
  Company Number: CN-ROCHE-2460329

PATIENT

DRUGS (4)
  1. CISPLATIN. [Suspect]
     Active Substance: CISPLATIN
     Indication: LUNG ADENOCARCINOMA
     Route: 065
  2. CARBOPLATIN. [Suspect]
     Active Substance: CARBOPLATIN
     Indication: LUNG ADENOCARCINOMA
     Dosage: AUC, 5.0 MG/ML/MIN
     Route: 065
  3. PEMETREXED. [Suspect]
     Active Substance: PEMETREXED
     Indication: LUNG ADENOCARCINOMA
     Route: 065
  4. BEVACIZUMAB. [Suspect]
     Active Substance: BEVACIZUMAB
     Indication: LUNG ADENOCARCINOMA
     Dosage: EVERY THREE WEEKS FOR UP TO SIX CYCLES
     Route: 042

REACTIONS (3)
  - Anaemia [Unknown]
  - Neutropenia [Unknown]
  - Fatigue [Unknown]
